FAERS Safety Report 7088235-3 (Version None)
Quarter: 2010Q4

REPORT INFORMATION
  Report Type: 
  Country: None (occurrence: None)
  Receive Date: 20101108
  Receipt Date: 20101018
  Transmission Date: 20110411
  Serious: Yes (Hospitalization, Other)
  Sender: FDA-Public Use
  Company Number: US-BAYER-201039203NA

PATIENT
  Age: 47 Year
  Sex: Female
  Weight: 70 kg

DRUGS (5)
  1. YAZ [Suspect]
     Indication: ENDOMETRIOSIS
     Route: 048
     Dates: start: 20070101, end: 20080101
  2. ADVIL [Concomitant]
     Indication: BACK PAIN
  3. HYDROCODONE BITARTRATE [Concomitant]
     Indication: PAIN IN EXTREMITY
  4. LYRICA [Concomitant]
  5. VICODIN [Concomitant]

REACTIONS (12)
  - BACK PAIN [None]
  - CHEST PAIN [None]
  - DEEP VEIN THROMBOSIS [None]
  - DIZZINESS [None]
  - DYSPNOEA [None]
  - HYPOXIA [None]
  - MYOCARDIAL INFARCTION [None]
  - PAIN IN EXTREMITY [None]
  - PULMONARY EMBOLISM [None]
  - SYNCOPE [None]
  - TACHYCARDIA [None]
  - TROPONIN INCREASED [None]
